FAERS Safety Report 22606149 (Version 1)
Quarter: 2023Q2

REPORT INFORMATION
  Report Type: Spontaneous
  Country: IT (occurrence: IT)
  Receive Date: 20230615
  Receipt Date: 20230615
  Transmission Date: 20230721
  Serious: Yes (Hospitalization, Disabling, Other)
  Sender: FDA-Public Use
  Company Number: IT-GILEAD-2023-0620981

PATIENT
  Age: 58 Year
  Sex: Male

DRUGS (6)
  1. TECARTUS [Suspect]
     Active Substance: BREXUCABTAGENE AUTOLEUCEL
     Indication: Mantle cell lymphoma
     Dosage: 40,000 MILLION
     Route: 042
     Dates: start: 20230313, end: 20230313
  2. FLUDARABINE [Concomitant]
     Active Substance: FLUDARABINE PHOSPHATE
     Dosage: UNK
     Dates: start: 20230308, end: 20230310
  3. CYCLOPHOSPHAMIDE [Concomitant]
     Active Substance: CYCLOPHOSPHAMIDE
     Dosage: UNK
     Dates: start: 20230308, end: 20230310
  4. ACYCLOVIR [Concomitant]
     Active Substance: ACYCLOVIR
  5. BACTRIM [Concomitant]
     Active Substance: SULFAMETHOXAZOLE\TRIMETHOPRIM
  6. POSACONAZOLE [Concomitant]
     Active Substance: POSACONAZOLE

REACTIONS (4)
  - Diverticulitis intestinal perforated [Recovering/Resolving]
  - Cytomegalovirus infection reactivation [Unknown]
  - Cytokine release syndrome [Recovered/Resolved]
  - Immune effector cell-associated neurotoxicity syndrome [Recovered/Resolved]

NARRATIVE: CASE EVENT DATE: 20230315
